FAERS Safety Report 8486476 (Version 2)
Quarter: 2012Q4

REPORT INFORMATION
  Report Type: 
  Country: US (occurrence: US)
  Receive Date: 20120402
  Receipt Date: 20120903
  Transmission Date: 20130627
  Serious: Yes (Death, Hospitalization, Other)
  Sender: FDA-Public Use
  Company Number: US-PFIZER INC-2012080359

PATIENT
  Age: 57 Year
  Sex: Male

DRUGS (2)
  1. CHANTIX [Suspect]
     Indication: SMOKING CESSATION THERAPY
     Dosage: starter pack
     Dates: start: 2007
  2. CHANTIX [Suspect]
     Dosage: starter pack
     Dates: start: 20090420, end: 20090628

REACTIONS (4)
  - Completed suicide [Fatal]
  - Suicidal ideation [Recovered/Resolved]
  - Depression [Recovered/Resolved]
  - Schizophrenia [Recovered/Resolved]
